FAERS Safety Report 9225782 (Version 1)
Quarter: 2013Q2

REPORT INFORMATION
  Report Type: Spontaneous
  Country: US (occurrence: None)
  Receive Date: 20130410
  Receipt Date: 20130410
  Transmission Date: 20140414
  Serious: Yes (Hospitalization)
  Sender: FDA-Public Use
  Company Number: None

PATIENT
  Age: 84 Year
  Sex: Female
  Weight: 46 kg

DRUGS (14)
  1. TRAMADOL [Suspect]
     Indication: PAIN
     Route: 048
  2. LORAZEPAM [Suspect]
     Indication: ANXIETY
     Route: 048
  3. SYNTHROID [Concomitant]
  4. LOPRESSOR [Concomitant]
  5. COZAAR [Concomitant]
  6. MIRALAX [Concomitant]
  7. CALTRATE [Concomitant]
  8. CELEBREX [Concomitant]
  9. OMEPRAZOLE [Concomitant]
  10. LORAZEPAM [Concomitant]
  11. SENNA [Concomitant]
  12. IMODIUM [Concomitant]
  13. ROBITUSSIN [Concomitant]
  14. OCULAR LUS [Concomitant]

REACTIONS (1)
  - Encephalopathy [None]
